FAERS Safety Report 5615092-1 (Version None)
Quarter: 2008Q1

REPORT INFORMATION
  Report Type: 
  Country: None (occurrence: None)
  Receive Date: 20080204
  Receipt Date: 20080204
  Transmission Date: 20080703
  Serious: Yes (Hospitalization)
  Sender: FDA-Public Use
  Company Number: None

PATIENT
  Age: 56 Year
  Sex: Male
  Weight: 80 kg

DRUGS (2)
  1. PEG-INTRON [Suspect]
     Indication: HEPATITIS C
     Dosage: 180MCG QWEEK SQ
     Route: 058
     Dates: start: 20070525, end: 20071101
  2. RIBAVIRIN [Suspect]
     Indication: HEPATITIS C
     Dosage: 1000MG EVERY DAY PO
     Route: 048
     Dates: start: 20070525, end: 20071101

REACTIONS (9)
  - ANAEMIA [None]
  - DISCOMFORT [None]
  - EMPYEMA [None]
  - HYPOVENTILATION [None]
  - INSOMNIA [None]
  - LEUKOPENIA [None]
  - MALAISE [None]
  - PNEUMONITIS [None]
  - THROMBOCYTOPENIA [None]
